FAERS Safety Report 10146864 (Version 1)
Quarter: 2014Q2

REPORT INFORMATION
  Report Type: Spontaneous
  Country: US (occurrence: None)
  Receive Date: 20140430
  Receipt Date: 20140430
  Transmission Date: 20141212
  Serious: Yes (Hospitalization)
  Sender: FDA-Public Use
  Company Number: None

PATIENT
  Age: 59 Year
  Sex: Male

DRUGS (6)
  1. PHENYTOIN [Suspect]
     Indication: CONVULSION PROPHYLAXIS
     Route: 048
     Dates: start: 20130724
  2. ATENOLOL [Concomitant]
  3. CHLORTHALIDONE [Concomitant]
  4. CETIRIZINE [Concomitant]
  5. FENOFIBRATE [Concomitant]
  6. KETOFEN OCULAR DROPS [Concomitant]

REACTIONS (6)
  - Dizziness [None]
  - Tremor [None]
  - Musculoskeletal stiffness [None]
  - Gait disturbance [None]
  - Anticonvulsant drug level above therapeutic [None]
  - Unresponsive to stimuli [None]
